FAERS Safety Report 5947067-7 (Version None)
Quarter: 2008Q4

REPORT INFORMATION
  Report Type: 
  Country: None (occurrence: None)
  Receive Date: 20081106
  Receipt Date: 20081028
  Transmission Date: 20090506
  Serious: Yes (Hospitalization, Other)
  Sender: FDA-Public Use
  Company Number: 2008BI022628

PATIENT
  Age: 62 Year
  Sex: Female

DRUGS (4)
  1. TYSABRI [Suspect]
     Indication: MULTIPLE SCLEROSIS
     Dosage: 300 MG; QM; IV
     Route: 042
     Dates: start: 20080520
  2. CON MEDS [Concomitant]
  3. AVONEX (PREV.) [Concomitant]
  4. BETASERON (PREV.) [Concomitant]

REACTIONS (13)
  - ARTHROPATHY [None]
  - ASTHENIA [None]
  - BALANCE DISORDER [None]
  - COMPRESSION FRACTURE [None]
  - CONDITION AGGRAVATED [None]
  - FATIGUE [None]
  - GAIT DISTURBANCE [None]
  - HEADACHE [None]
  - INTERVERTEBRAL DISC PROTRUSION [None]
  - JOINT SWELLING [None]
  - MULTIPLE SCLEROSIS [None]
  - PARAESTHESIA [None]
  - THORACIC VERTEBRAL FRACTURE [None]
